FAERS Safety Report 5271425-X (Version None)
Quarter: 2007Q1

REPORT INFORMATION
  Report Type: 
  Country: None (occurrence: None)
  Receive Date: 20061214
  Receipt Date: 20060428
  Transmission Date: 20070707
  Serious: Yes (Hospitalization, Other)
  Sender: FDA-Public Use
  Company Number: 2005039435

PATIENT
  Age: 30 Year
  Sex: Male

DRUGS (5)
  1. BEXTRA [Suspect]
     Indication: INFLAMMATION
     Dosage: 20 MG (20 MG,2 IN 1 D)
     Dates: start: 20001213, end: 20030101
  2. BEXTRA [Suspect]
     Indication: LIMB INJURY
     Dosage: 20 MG (20 MG,2 IN 1 D)
     Dates: start: 20001213, end: 20030101
  3. BEXTRA [Suspect]
     Indication: MUSCULOSKELETAL PAIN
     Dosage: 20 MG (20 MG,2 IN 1 D)
     Dates: start: 20001213, end: 20030101
  4. VIOXX [Suspect]
     Indication: LIMB INJURY
  5. VIOXX [Suspect]
     Indication: PAIN

REACTIONS (1)
  - MYOCARDIAL INFARCTION [None]
